FAERS Safety Report 10214915 (Version 1)
Quarter: 2014Q1

REPORT INFORMATION
  Report Type: Spontaneous
  Country: US (occurrence: None)
  Receive Date: 20140306
  Receipt Date: 20140306
  Transmission Date: 20141002
  Serious: Yes (Other)
  Sender: FDA-Public Use
  Company Number: 163-21880-12090158

PATIENT
  Age: 74 Year
  Sex: Male
  Weight: 107.96 kg

DRUGS (3)
  1. REVLIMID [Suspect]
     Indication: PLASMA CELL MYELOMA
     Route: 048
     Dates: start: 201208
  2. VELCADE (BORTEZOMIB) [Concomitant]
  3. ZOMETA (ZOLENDRONIC ACID) [Concomitant]

REACTIONS (2)
  - Hypersensitivity [None]
  - Rash [None]
